FAERS Safety Report 12008848 (Version 1)
Quarter: 2016Q1

REPORT INFORMATION
  Report Type: Spontaneous
  Country: US (occurrence: None)
  Receive Date: 20160203
  Receipt Date: 20160203
  Transmission Date: 20160526
  Serious: Yes (Hospitalization)
  Sender: FDA-Public Use
  Company Number: None

PATIENT
  Age: 71 Year
  Sex: Female
  Weight: 177.4 kg

DRUGS (19)
  1. NORCO [Concomitant]
     Active Substance: ACETAMINOPHEN\HYDROCODONE BITARTRATE
  2. PLAVIX [Concomitant]
     Active Substance: CLOPIDOGREL BISULFATE
  3. CASCARA SAGRADA [Concomitant]
     Active Substance: FRANGULA PURSHIANA BARK
  4. ALEMTUZUMAB [Suspect]
     Active Substance: ALEMTUZUMAB
     Indication: MULTIPLE SCLEROSIS
     Route: 042
     Dates: start: 20150401, end: 20150403
  5. LAMOTRIGINE. [Concomitant]
     Active Substance: LAMOTRIGINE
  6. METOPROLOL SUCCINATE. [Concomitant]
     Active Substance: METOPROLOL SUCCINATE
  7. ACYCLOVIR. [Concomitant]
     Active Substance: ACYCLOVIR
  8. AMLODIPINE/BENAZEPRIL [Concomitant]
     Active Substance: AMLODIPINE BESYLATE\BENAZEPRIL HYDROCHLORIDE
  9. ROPINIROLE. [Concomitant]
     Active Substance: ROPINIROLE
  10. XEO MEGA COMPLEX [Concomitant]
  11. ENDOCET [Concomitant]
     Active Substance: ACETAMINOPHEN\OXYCODONE HYDROCHLORIDE
  12. SOLU-MEDROL [Suspect]
     Active Substance: METHYLPREDNISOLONE SODIUM SUCCINATE
     Route: 042
     Dates: start: 20150401, end: 20150403
  13. CLONAZEPAM. [Concomitant]
     Active Substance: CLONAZEPAM
  14. CARBAMAZEPINE. [Concomitant]
     Active Substance: CARBAMAZEPINE
  15. DULOXETINE. [Concomitant]
     Active Substance: DULOXETINE
  16. MECLIZINE [Concomitant]
     Active Substance: MECLIZINE HYDROCHLORIDE
  17. NYSTATIN. [Concomitant]
     Active Substance: NYSTATIN
  18. VITAMIN D3 [Concomitant]
     Active Substance: CHOLECALCIFEROL
  19. GABAPENTIN. [Concomitant]
     Active Substance: GABAPENTIN

REACTIONS (6)
  - Oropharyngeal pain [None]
  - Dysphagia [None]
  - Cough [None]
  - Pharyngeal oedema [None]
  - Oral candidiasis [None]
  - Post procedural complication [None]

NARRATIVE: CASE EVENT DATE: 20150924
